FAERS Safety Report 4325844-6 (Version None)
Quarter: 2004Q1

REPORT INFORMATION
  Report Type: 
  Country: None (occurrence: None)
  Receive Date: 20040329
  Receipt Date: 20040324
  Transmission Date: 20041129
  Serious: Yes (Other)
  Sender: FDA-Public Use
  Company Number: US-ROCHE-362892

PATIENT
  Age: 55 Year
  Sex: Female

DRUGS (2)
  1. VALIUM [Suspect]
     Indication: MENIERE'S DISEASE
     Route: 048
     Dates: start: 19840615
  2. ANTIVERT [Concomitant]
     Indication: MENIERE'S DISEASE
     Route: 048
     Dates: start: 19840615

REACTIONS (2)
  - BREAST CANCER [None]
  - BREAST CANCER FEMALE [None]
